FAERS Safety Report 4584565-5 (Version None)
Quarter: 2005Q1

REPORT INFORMATION
  Report Type: 
  Country: None (occurrence: None)
  Receive Date: 20050125
  Receipt Date: 20040824
  Transmission Date: 20050727
  Serious: No
  Sender: FDA-Public Use
  Company Number: USA040466250

PATIENT
  Sex: Female

DRUGS (8)
  1. FORTEO [Suspect]
     Indication: OSTEOPOROSIS
     Dates: start: 20030218
  2. EVISTA [Concomitant]
  3. CHLORTHALIDONE [Concomitant]
  4. AMILORIDE [Concomitant]
  5. VITAMIN B6 [Concomitant]
  6. VITAMIN E [Concomitant]
  7. MULTI-VITAMIN [Concomitant]
  8. CALCIUM CARBONATE [Concomitant]

REACTIONS (1)
  - URTICARIA [None]
